FAERS Safety Report 6233838-9 (Version None)
Quarter: 2009Q2

REPORT INFORMATION
  Report Type: 
  Country: None (occurrence: None)
  Receive Date: 20090618
  Receipt Date: 20090511
  Transmission Date: 20091009
  Serious: No
  Sender: FDA-Public Use
  Company Number: A0775890A

PATIENT
  Age: 55 Year
  Sex: Female
  Weight: 69.5 kg

DRUGS (1)
  1. PROMACTA [Suspect]
     Indication: IDIOPATHIC THROMBOCYTOPENIC PURPURA
     Dosage: 50MG PER DAY
     Route: 048
     Dates: start: 20081201

REACTIONS (11)
  - BURNING SENSATION [None]
  - CONDITION AGGRAVATED [None]
  - ERYTHEMA [None]
  - INSOMNIA [None]
  - IRRITABILITY [None]
  - NEUROPATHY PERIPHERAL [None]
  - PAIN [None]
  - PAIN IN EXTREMITY [None]
  - PARAESTHESIA [None]
  - RASH MACULAR [None]
  - SKIN ULCER [None]
